FAERS Safety Report 6760921-1 (Version None)
Quarter: 2010Q2

REPORT INFORMATION
  Report Type: 
  Country: None (occurrence: None)
  Receive Date: 20100608
  Receipt Date: 20100601
  Transmission Date: 20101027
  Serious: Yes (Hospitalization)
  Sender: FDA-Public Use
  Company Number: US-GILEAD-2010-0029546

PATIENT
  Sex: Female
  Weight: 124.85 kg

DRUGS (14)
  1. LETAIRIS [Suspect]
     Indication: PULMONARY ARTERIAL HYPERTENSION
     Route: 048
     Dates: start: 20081021
  2. COUMADIN [Concomitant]
  3. LASIX [Concomitant]
  4. PRINIVIL [Concomitant]
  5. KEFLEX [Concomitant]
  6. CYMBALTA [Concomitant]
  7. LEUCOVORIN CALCIUM [Concomitant]
  8. XYZAL [Concomitant]
  9. PAXIL [Concomitant]
  10. SYNTHROID [Concomitant]
  11. PREDNISONE [Concomitant]
  12. IMURAN [Concomitant]
  13. FLONASE [Concomitant]
  14. ASPIRIN [Concomitant]

REACTIONS (2)
  - RESPIRATION ABNORMAL [None]
  - THROMBOSIS [None]
